FAERS Safety Report 6744713-5 (Version None)
Quarter: 2010Q2

REPORT INFORMATION
  Report Type: 
  Country: None (occurrence: None)
  Receive Date: 20100526
  Receipt Date: 20100526
  Transmission Date: 20101027
  Serious: No
  Sender: FDA-Public Use
  Company Number: None

PATIENT
  Sex: Female
  Weight: 68.0396 kg

DRUGS (1)
  1. LORAZEPAM [Suspect]
     Indication: PANIC DISORDER
     Dosage: 1 DAILY PO
     Route: 048
     Dates: start: 20100429, end: 20100525

REACTIONS (2)
  - DIZZINESS [None]
  - PALPITATIONS [None]
